FAERS Safety Report 16564877 (Version 1)
Quarter: 2019Q3

REPORT INFORMATION
  Report Type: Spontaneous
  Country: US (occurrence: US)
  Receive Date: 20190709
  Receipt Date: 20190709
  Transmission Date: 20191004
  Serious: Yes (Other)
  Sender: FDA-Public Use
  Company Number: None

PATIENT
  Age: 75 Year
  Sex: Female
  Weight: 61.23 kg

DRUGS (1)
  1. LEXISCAN [Suspect]
     Active Substance: REGADENOSON

REACTIONS (8)
  - Pain in extremity [None]
  - Dizziness [None]
  - Gait disturbance [None]
  - Hypoaesthesia [None]
  - Blood pressure increased [None]
  - Ear discomfort [None]
  - Neck pain [None]
  - Dyspnoea [None]

NARRATIVE: CASE EVENT DATE: 20190708
